FAERS Safety Report 10078804 (Version 3)
Quarter: 2015Q2

REPORT INFORMATION
  Report Type: Report from Study
  Country: GR (occurrence: GR)
  Receive Date: 20140415
  Receipt Date: 20150521
  Transmission Date: 20150821
  Serious: Yes (Hospitalization)
  Sender: FDA-Public Use
  Company Number: GR-NOVOPROD-406251

PATIENT
  Sex: Female
  Weight: 2.24 kg

DRUGS (2)
  1. NOVORAPID [Suspect]
     Active Substance: INSULIN ASPART
     Indication: GESTATIONAL DIABETES
     Dosage: 6 IU
     Route: 064
     Dates: start: 20140109
  2. T4 [Concomitant]
     Active Substance: LEVOTHYROXINE
     Dosage: 125 MG, TID (1/MORNING AND 1/NOON AND 1/NIGHT)
     Route: 064

REACTIONS (2)
  - Premature baby [Unknown]
  - Foetal exposure during pregnancy [Recovered/Resolved]

NARRATIVE: CASE EVENT DATE: 201401
